FAERS Safety Report 17660573 (Version 2)
Quarter: 2021Q1

REPORT INFORMATION
  Report Type: Spontaneous
  Country: US (occurrence: US)
  Receive Date: 20200413
  Receipt Date: 20210325
  Transmission Date: 20210419
  Serious: No
  Sender: FDA-Public Use
  Company Number: US-MYLANLABS-2020M1034628

PATIENT
  Sex: Female
  Weight: 91 kg

DRUGS (1)
  1. ESTRADIOL TRANSDERMAL SYSTEM [Suspect]
     Active Substance: ESTRADIOL
     Indication: HYSTERECTOMY
     Dosage: 0.06 MILLIGRAM
     Route: 062
     Dates: start: 20200322, end: 20200329

REACTIONS (1)
  - Application site rash [Unknown]
